FAERS Safety Report 10238403 (Version 2)
Quarter: 2014Q2

REPORT INFORMATION
  Report Type: Report from Study
  Country: CO (occurrence: CO)
  Receive Date: 20140616
  Receipt Date: 20140619
  Transmission Date: 20141212
  Serious: Yes (Death)
  Sender: FDA-Public Use
  Company Number: CO-ASTRAZENECA-2014SE44076

PATIENT
  Age: 82 Year
  Sex: Male

DRUGS (2)
  1. BRILINTA [Suspect]
     Indication: INFARCTION
     Route: 048
     Dates: start: 20140224, end: 20140416
  2. ASA [Concomitant]

REACTIONS (1)
  - Cardio-respiratory arrest [Fatal]
